FAERS Safety Report 25248039 (Version 1)
Quarter: 2025Q2

REPORT INFORMATION
  Report Type: Spontaneous
  Country: US (occurrence: None)
  Receive Date: 20250429
  Receipt Date: 20250429
  Transmission Date: 20250717
  Serious: Yes (Hospitalization)
  Sender: NORMON
  Company Number: US-MLMSERVICE-20250422-PI488845-00256-1

PATIENT
  Age: 75 Year
  Sex: Male

DRUGS (1)
  1. PANTOPRAZOLE [Suspect]
     Active Substance: PANTOPRAZOLE
     Indication: Peptic ulcer

REACTIONS (2)
  - Campylobacter infection [Unknown]
  - Small intestinal obstruction [Unknown]
